FAERS Safety Report 10031110 (Version 2)
Quarter: 2015Q2

REPORT INFORMATION
  Report Type: Spontaneous
  Country: US (occurrence: US)
  Receive Date: 20140324
  Receipt Date: 20150429
  Transmission Date: 20150821
  Serious: No
  Sender: FDA-Public Use
  Company Number: US-BIOGENIDEC-2014BI025686

PATIENT
  Sex: Female

DRUGS (1)
  1. TYSABRI [Suspect]
     Active Substance: NATALIZUMAB
     Indication: MULTIPLE SCLEROSIS
     Route: 042
     Dates: start: 20140117, end: 20150122

REACTIONS (8)
  - Agraphia [Not Recovered/Not Resolved]
  - Asthenia [Recovered/Resolved]
  - Drug ineffective [Recovered/Resolved]
  - Abasia [Recovered/Resolved]
  - Coordination abnormal [Recovered/Resolved]
  - Motor dysfunction [Recovered/Resolved]
  - Musculoskeletal disorder [Recovered/Resolved]
  - Multiple sclerosis [Unknown]
